FAERS Safety Report 4540533-0 (Version None)
Quarter: 2004Q4

REPORT INFORMATION
  Report Type: 
  Country: None (occurrence: None)
  Receive Date: 20041228
  Receipt Date: 20041228
  Transmission Date: 20050328
  Serious: Yes (Other)
  Sender: FDA-Public Use
  Company Number: None

PATIENT
  Age: 36 Year
  Sex: Female
  Weight: 59.4212 kg

DRUGS (1)
  1. ZOLOFT [Suspect]
     Indication: DEPRESSION
     Dosage: 50 MG  ONCE DAILY ORAL
     Route: 048
     Dates: start: 20041215, end: 20041226

REACTIONS (2)
  - RASH MACULAR [None]
  - RASH PRURITIC [None]
